FAERS Safety Report 24891033 (Version 1)
Quarter: 2025Q1

REPORT INFORMATION
  Report Type: Spontaneous
  Country: US (occurrence: None)
  Receive Date: 20250127
  Receipt Date: 20250127
  Transmission Date: 20250409
  Serious: Yes (Other)
  Sender: FDA-CTU
  Company Number: None

PATIENT
  Age: 84 Year
  Sex: Male
  Weight: 79.2 kg

DRUGS (1)
  1. TAGRISSO [Suspect]
     Active Substance: OSIMERTINIB
     Indication: Lung neoplasm malignant
     Dosage: 80 MG DAILY ORAL
     Route: 048
     Dates: start: 20240812

REACTIONS (2)
  - Heart rate increased [None]
  - Dizziness [None]

NARRATIVE: CASE EVENT DATE: 20241121
